FAERS Safety Report 10558252 (Version 2)
Quarter: 2015Q2

REPORT INFORMATION
  Report Type: Spontaneous
  Country: US (occurrence: US)
  Receive Date: 20141031
  Receipt Date: 20150626
  Transmission Date: 20150821
  Serious: Yes (Other)
  Sender: FDA-Public Use
  Company Number: US-UCBSA-2014016674

PATIENT
  Age: 74 Year
  Sex: Male

DRUGS (3)
  1. OMEPRAZOLE. [Suspect]
     Active Substance: OMEPRAZOLE
     Indication: GASTROOESOPHAGEAL REFLUX DISEASE
     Dosage: 20 MG, ONCE DAILY (QD)
  2. OMEPRAZOLE. [Suspect]
     Active Substance: OMEPRAZOLE
     Dosage: 20 MG, 2X/DAY (BID)
     Dates: start: 2013
  3. VITAMINE D DCI [Concomitant]
     Indication: VITAMIN D
     Dosage: 5000 IU, DAILY
     Dates: start: 201407

REACTIONS (3)
  - Gastrointestinal haemorrhage [Recovered/Resolved]
  - N-telopeptide urine increased [Not Recovered/Not Resolved]
  - Vitamin D deficiency [Recovered/Resolved]

NARRATIVE: CASE EVENT DATE: 201407
